FAERS Safety Report 9739529 (Version 1)
Quarter: 2013Q4

REPORT INFORMATION
  Report Type: Spontaneous
  Country: US (occurrence: US)
  Receive Date: 20131209
  Receipt Date: 20131209
  Transmission Date: 20140711
  Serious: Yes (Other)
  Sender: FDA-Public Use
  Company Number: US-TEVA-449127USA

PATIENT
  Age: 64 Year
  Sex: Female

DRUGS (1)
  1. METHOTREXATE [Suspect]
     Route: 065

REACTIONS (6)
  - Clostridium difficile colitis [Recovered/Resolved]
  - Bone marrow failure [Unknown]
  - Pancytopenia [Recovered/Resolved]
  - Epidermal necrosis [Recovered/Resolved]
  - Toxicity to various agents [Recovered/Resolved]
  - Perivascular dermatitis [Recovered/Resolved]
